FAERS Safety Report 16846074 (Version 3)
Quarter: 2019Q4

REPORT INFORMATION
  Report Type: Spontaneous
  Country: IT (occurrence: IT)
  Receive Date: 20190924
  Receipt Date: 20191004
  Transmission Date: 20200122
  Serious: Yes (Death)
  Sender: FDA-Public Use
  Company Number: IT-TAKEDA-2019TUS053538

PATIENT
  Age: 77 Year
  Sex: Female

DRUGS (1)
  1. IXAZOMIB [Suspect]
     Active Substance: IXAZOMIB
     Indication: PLASMA CELL MYELOMA
     Dosage: 4 MILLIGRAM
     Route: 065
     Dates: start: 201908

REACTIONS (1)
  - Death [Fatal]

NARRATIVE: CASE EVENT DATE: 20190912
